FAERS Safety Report 5383365-6 (Version None)
Quarter: 2007Q3

REPORT INFORMATION
  Report Type: 
  Country: None (occurrence: None)
  Receive Date: 20070710
  Receipt Date: 20070629
  Transmission Date: 20080115
  Serious: Yes (Other)
  Sender: FDA-Public Use
  Company Number: US-PFIZER INC-2007054392

PATIENT
  Sex: Female

DRUGS (1)
  1. PREDNISONE [Suspect]

REACTIONS (5)
  - DRUG HYPERSENSITIVITY [None]
  - EPILEPSY [None]
  - FLUID RETENTION [None]
  - RAYNAUD'S PHENOMENON [None]
  - SYSTEMIC LUPUS ERYTHEMATOSUS [None]
